FAERS Safety Report 14356485 (Version 1)
Quarter: 2018Q1

REPORT INFORMATION
  Report Type: Spontaneous
  Country: US (occurrence: US)
  Receive Date: 20180104
  Receipt Date: 20180104
  Transmission Date: 20180509
  Serious: No
  Sender: FDA-Public Use
  Company Number: None

PATIENT
  Age: 17 Year
  Sex: Male

DRUGS (1)
  1. HUMIRA [Suspect]
     Active Substance: ADALIMUMAB
     Indication: CROHN^S DISEASE
     Dosage: 40MG 1 PEN EVERY OTHER WEEK SUBCUTANEOUSLY
     Route: 058
     Dates: start: 20160224, end: 20171207

REACTIONS (4)
  - Swelling [None]
  - Drug intolerance [None]
  - Condition aggravated [None]
  - Antibody test abnormal [None]

NARRATIVE: CASE EVENT DATE: 20171230
